FAERS Safety Report 5226756-6 (Version None)
Quarter: 2007Q1

REPORT INFORMATION
  Report Type: 
  Country: None (occurrence: None)
  Receive Date: 20070201
  Receipt Date: 20070126
  Transmission Date: 20070707
  Serious: No
  Sender: FDA-Public Use
  Company Number: US-BAXTER-2007BH000745

PATIENT
  Age: 35 Year
  Sex: Female

DRUGS (1)
  1. SUPRANE [Suspect]
     Indication: ACCIDENTAL EXPOSURE
     Dosage: DOSE UNIT:UNKNOWN
     Dates: start: 20070126, end: 20070126

REACTIONS (2)
  - ACCIDENTAL EXPOSURE [None]
  - OCULAR HYPERAEMIA [None]
